FAERS Safety Report 21990780 (Version 1)
Quarter: 2023Q1

REPORT INFORMATION
  Report Type: Spontaneous
  Country: US (occurrence: US)
  Receive Date: 20230214
  Receipt Date: 20230214
  Transmission Date: 20230418
  Serious: Yes (Other)
  Sender: FDA-Public Use
  Company Number: US-ANIPHARMA-2022-US-029267

PATIENT
  Sex: Female

DRUGS (10)
  1. CORTICOTROPIN [Suspect]
     Active Substance: CORTICOTROPIN
     Indication: Multiple sclerosis
     Dosage: INJECT 80 UNITS (1ML) SUBCUTANEOUSLY ONCE DAILY FOR 2 WEEKS. DISCARD OPEN BOTTLE(S) AFTER 28 DAYS
     Route: 058
  2. ADDERALL [Concomitant]
     Active Substance: AMPHETAMINE ASPARTATE\AMPHETAMINE SULFATE\DEXTROAMPHETAMINE SACCHARATE\DEXTROAMPHETAMINE SULFATE
     Route: 065
  3. LEXAPRO [Concomitant]
     Active Substance: ESCITALOPRAM OXALATE
     Route: 065
  4. D-3-5 [Concomitant]
     Route: 065
  5. VITAMIN B12 [Concomitant]
     Active Substance: CYANOCOBALAMIN
     Route: 065
  6. BIOTIN [Concomitant]
     Active Substance: BIOTIN
     Route: 065
  7. GABAPENTIN [Concomitant]
     Active Substance: GABAPENTIN
     Route: 065
  8. AMPYRA [Concomitant]
     Active Substance: DALFAMPRIDINE
     Route: 065
  9. BACLOFEN [Concomitant]
     Active Substance: BACLOFEN
     Route: 065
  10. ATORVASTATIN CALCIUM [Concomitant]
     Active Substance: ATORVASTATIN CALCIUM
     Route: 065

REACTIONS (3)
  - Multiple sclerosis relapse [Unknown]
  - Drug ineffective [Unknown]
  - Product dose omission issue [Unknown]
